FAERS Safety Report 5440696-9 (Version None)
Quarter: 2007Q3

REPORT INFORMATION
  Report Type: 
  Country: None (occurrence: None)
  Receive Date: 20070831
  Receipt Date: 20070815
  Transmission Date: 20080115
  Serious: No
  Sender: FDA-Public Use
  Company Number: US-BOEHRINGER INGELHEIM PHARMACEUTICALS, INC.-2007-BP-12181BP

PATIENT
  Sex: Male

DRUGS (7)
  1. COMBIVENT [Suspect]
     Indication: CHRONIC OBSTRUCTIVE PULMONARY DISEASE
     Route: 055
     Dates: start: 20051001
  2. COMBIVENT [Suspect]
     Indication: PNEUMONIA
  3. COMBIVENT [Suspect]
     Indication: DYSPNOEA
  4. ATROVENT [Concomitant]
     Indication: CHRONIC OBSTRUCTIVE PULMONARY DISEASE
     Route: 055
     Dates: start: 20060101
  5. GUAIFENEX DM [Concomitant]
  6. LISINOPRIL [Concomitant]
  7. FLOMAX [Concomitant]

REACTIONS (1)
  - DRUG INEFFECTIVE [None]
